FAERS Safety Report 4609515-4 (Version None)
Quarter: 2005Q1

REPORT INFORMATION
  Report Type: 
  Country: None (occurrence: None)
  Receive Date: 20050314
  Receipt Date: 20050314
  Transmission Date: 20050727
  Serious: Yes (Life-Threatening)
  Sender: FDA-Public Use
  Company Number: None

PATIENT
  Age: 24 Year
  Sex: Female
  Weight: 88.5 kg

DRUGS (1)
  1. HYDROMORPHONE 2MG/ML INJECTION [Suspect]
     Indication: PAIN
     Dates: start: 20041203, end: 20041204

REACTIONS (3)
  - RESPIRATORY ARREST [None]
  - SKIN DISCOLOURATION [None]
  - SOMNOLENCE [None]
